FAERS Safety Report 14344549 (Version 3)
Quarter: 2019Q3

REPORT INFORMATION
  Report Type: Report from Study
  Country: JP (occurrence: JP)
  Receive Date: 20180102
  Receipt Date: 20190709
  Transmission Date: 20191004
  Serious: Yes (Other)
  Sender: FDA-Public Use
  Company Number: JP-AMGEN-JPNNI2017022544

PATIENT
  Age: 75 Year
  Sex: Female
  Weight: 37.6 kg

DRUGS (14)
  1. CARFILZOMIB [Suspect]
     Active Substance: CARFILZOMIB
     Dosage: 2017/1/12, 1/13, 1/19, 1/20, 1/26, 1/27, 2/9, 2/10, 2/16, 2/17, 2/23, 2/24, 3/9, 3/10, 3/16, 3/17, 3
     Route: 041
  2. REVLIMID [Suspect]
     Active Substance: LENALIDOMIDE
     Indication: PLASMA CELL MYELOMA
     Dosage: 20 MILLIGRAM
     Route: 048
     Dates: start: 20161115, end: 20161205
  3. REVLIMID [Suspect]
     Active Substance: LENALIDOMIDE
     Dosage: 20 MILLIGRAM
     Route: 048
     Dates: start: 20161215
  4. REVLIMID [Suspect]
     Active Substance: LENALIDOMIDE
     Dosage: 20 MILLIGRAM
     Route: 048
     Dates: start: 20170215
  5. VICCLOX [Concomitant]
     Active Substance: ACYCLOVIR SODIUM
     Indication: ANTIVIRAL PROPHYLAXIS
     Dosage: UNK
     Route: 048
  6. REVLIMID [Suspect]
     Active Substance: LENALIDOMIDE
     Dosage: 20 MILLIGRAM
     Route: 048
     Dates: start: 20170112
  7. REVLIMID [Suspect]
     Active Substance: LENALIDOMIDE
     Dosage: 20 MILLIGRAM
     Route: 048
     Dates: start: 20170309
  8. DEXAMETHASONE. [Concomitant]
     Active Substance: DEXAMETHASONE
     Indication: PLASMA CELL MYELOMA
     Dosage: 40MG/DAY(2016/11/15,11/22,11/29,12/6,12/15,12/21) 4MG/DAY(2016/11/16,11/23,11/30,12/16,12/22)
     Route: 065
     Dates: start: 20161115
  9. DEXAMETHASONE. [Concomitant]
     Active Substance: DEXAMETHASONE
     Dosage: 40MG/DAY(2017/1/12,1/19,1/26,2/2,2/9,2/16,2/23) 4MG/DAY(2017/1/13,1/20,1/27,2/10,2/17)
     Route: 065
  10. CARFILZOMIB [Suspect]
     Active Substance: CARFILZOMIB
     Dosage: 2017/4/6, 4/7, 4/13, 4/14, 4/20, 4/21
     Route: 041
     Dates: end: 20170421
  11. REVLIMID [Suspect]
     Active Substance: LENALIDOMIDE
     Dosage: 20 MILLIGRAM
     Route: 048
     Dates: start: 20170209
  12. DEXAMETHASONE. [Concomitant]
     Active Substance: DEXAMETHASONE
     Dosage: 2017/3/9,3/16,3/23,4/6,4/13,4/20
     Route: 065
     Dates: end: 20170420
  13. REVLIMID [Suspect]
     Active Substance: LENALIDOMIDE
     Dosage: 20 MILLIGRAM
     Route: 048
     Dates: start: 20170406
  14. CARFILZOMIB [Suspect]
     Active Substance: CARFILZOMIB
     Indication: PLASMA CELL MYELOMA
     Dosage: 20MG/M2/DAY(2016/11/15, 11/16) 27MG/M2/DAY(2016/11/22, 11/23, 11/29, 11/30, 12/15, 12/16, 12/21, 12/
     Route: 041
     Dates: start: 20161115

REACTIONS (11)
  - Oral candidiasis [Recovered/Resolved]
  - Oedema peripheral [Recovering/Resolving]
  - Neutrophil count decreased [Not Recovered/Not Resolved]
  - Nausea [Recovered/Resolved]
  - Pyrexia [Unknown]
  - Cardiac failure [Not Recovered/Not Resolved]
  - Platelet count decreased [Recovered/Resolved]
  - Anaemia [Recovering/Resolving]
  - Cytomegalovirus viraemia [Unknown]
  - White blood cell count decreased [Not Recovered/Not Resolved]
  - Dysgeusia [Recovered/Resolved]

NARRATIVE: CASE EVENT DATE: 20161116
